FAERS Safety Report 9337550 (Version 2)
Quarter: 2013Q2

REPORT INFORMATION
  Report Type: Spontaneous
  Country: US (occurrence: US)
  Receive Date: 20130607
  Receipt Date: 20130617
  Transmission Date: 20140414
  Serious: Yes (Other)
  Sender: FDA-Public Use
  Company Number: US-BAXTER-2013BAX021072

PATIENT
  Age: 17 Year
  Sex: Female

DRUGS (3)
  1. GAMMAGARD LIQUID [Suspect]
     Indication: IMMUNODEFICIENCY COMMON VARIABLE
     Route: 042
  2. GAMMAGARD LIQUID [Suspect]
     Route: 058
  3. GAMMAGARD LIQUID [Suspect]
     Route: 042

REACTIONS (6)
  - Thrombocytopenia [Recovered/Resolved]
  - Splenomegaly [Unknown]
  - Viral infection [Unknown]
  - Pyrexia [Unknown]
  - Pain [Unknown]
  - Neutropenia [Unknown]
